FAERS Safety Report 17798320 (Version 2)
Quarter: 2020Q2

REPORT INFORMATION
  Report Type: Spontaneous
  Country: FR (occurrence: FR)
  Receive Date: 20200518
  Receipt Date: 20200527
  Transmission Date: 20200714
  Serious: Yes (Life-Threatening, Hospitalization)
  Sender: FDA-Public Use
  Company Number: FR-MYLANLABS-2020M1044878

PATIENT
  Age: 24 Year
  Sex: Male

DRUGS (10)
  1. BISOPROLOL MYLAN [Suspect]
     Active Substance: BISOPROLOL
     Indication: PRODUCT USED FOR UNKNOWN INDICATION
     Dosage: 25 MILLIGRAM
     Route: 048
  2. VALIUM [Suspect]
     Active Substance: DIAZEPAM
     Dosage: 700 MILLIGRAM, OVERDOSE IN A SUICIDE ATTEMPT
     Route: 048
  3. CYMBALTA [Suspect]
     Active Substance: DULOXETINE HYDROCHLORIDE
     Dosage: 60 MILLIGRAM, 26 TABLETS; OVERDOSE IN A SUICIDE ATTEMPT
     Route: 048
  4. VALIUM [Suspect]
     Active Substance: DIAZEPAM
     Indication: MIXED ANXIETY AND DEPRESSIVE DISORDER
     Dosage: 10 MILLIGRAM, QD
     Route: 048
  5. VOGALENE [Suspect]
     Active Substance: METOPIMAZINE
     Indication: PRODUCT USED FOR UNKNOWN INDICATION
     Dosage: 7.5 MILLIGRAM, 20 TABELTS
     Route: 048
  6. LAMALINE                           /00764901/ [Suspect]
     Active Substance: ACETAMINOPHEN\BELLADONNA LEAF\CAFFEINE\OPIUM
     Indication: PRODUCT USED FOR UNKNOWN INDICATION
     Dosage: 16 TABLETS
  7. FLECAINIDE [Interacting]
     Active Substance: FLECAINIDE
     Indication: PRODUCT USED FOR UNKNOWN INDICATION
     Dosage: INGESTED IN A LARGE QUANTITY,
     Route: 048
  8. PARACETAMOL [Interacting]
     Active Substance: ACETAMINOPHEN
     Indication: PRODUCT USED FOR UNKNOWN INDICATION
     Dosage: 21 GRAM
     Route: 048
  9. CYMBALTA [Suspect]
     Active Substance: DULOXETINE HYDROCHLORIDE
     Indication: MIXED ANXIETY AND DEPRESSIVE DISORDER
     Dosage: 60 MILLIGRAM, IN THE MORNING
     Route: 048
  10. FLECAINIDE [Interacting]
     Active Substance: FLECAINIDE
     Dosage: 4 GRAM, PROLONGED RELEASE FORM
     Route: 048

REACTIONS (26)
  - Ventricular tachycardia [Recovered/Resolved]
  - Electrocardiogram QT prolonged [Recovered/Resolved]
  - Atrioventricular block [Recovered/Resolved]
  - Bezoar [Recovered/Resolved]
  - Hypothermia [Unknown]
  - Tremor [Unknown]
  - Toxicity to various agents [Recovering/Resolving]
  - Sinus bradycardia [Recovering/Resolving]
  - Snoring [Unknown]
  - Hypotension [Recovering/Resolving]
  - Electrocardiogram T wave amplitude increased [Recovered/Resolved]
  - Pupillary reflex impaired [Unknown]
  - Left ventricular dysfunction [Recovered/Resolved]
  - Prothrombin time shortened [Unknown]
  - Suicide attempt [Recovering/Resolving]
  - Coma [Unknown]
  - Hypertonia [Unknown]
  - Reflexes abnormal [Unknown]
  - Respiratory acidosis [Unknown]
  - Electrocardiogram PR prolongation [Recovered/Resolved]
  - Intentional overdose [Recovering/Resolving]
  - Bundle branch block right [Recovered/Resolved]
  - Coagulation factor V level decreased [Unknown]
  - Membrane stabilising effect [Unknown]
  - Electrocardiogram QRS complex prolonged [Recovered/Resolved]
  - Drug interaction [Recovering/Resolving]
